FAERS Safety Report 5117334-8 (Version None)
Quarter: 2006Q3

REPORT INFORMATION
  Report Type: 
  Country: None (occurrence: None)
  Receive Date: 20060926
  Receipt Date: 20060906
  Transmission Date: 20061208
  Serious: Yes (Other)
  Sender: FDA-Public Use
  Company Number: US200609001570

PATIENT
  Age: 36 Year
  Sex: Female

DRUGS (3)
  1. PROZAC [Suspect]
     Indication: DEPRESSION
     Dosage: 10 MG, UNK, ORAL
     Route: 048
     Dates: start: 20020101
  2. PREGABALIN (PREGABALIN) [Concomitant]
  3. DEPAKOTE [Concomitant]

REACTIONS (1)
  - GRAND MAL CONVULSION [None]
